FAERS Safety Report 4502119-3 (Version None)
Quarter: 2004Q4

REPORT INFORMATION
  Report Type: 
  Country: None (occurrence: None)
  Receive Date: 20041109
  Receipt Date: 20041025
  Transmission Date: 20050328
  Serious: Yes (Hospitalization)
  Sender: FDA-Public Use
  Company Number: EWC040840170

PATIENT
  Age: 81 Year
  Sex: Female

DRUGS (8)
  1. FORTEO [Suspect]
     Indication: OSTEOPOROSIS
     Dosage: 20 UG/1 DAY
     Dates: start: 20040614, end: 20040724
  2. ENAPREN (ENALAPRIL MALEATE) [Concomitant]
  3. TORVAST (ATORVASTATIN CALCIUM) [Concomitant]
  4. LASIX [Concomitant]
  5. CORDARONE [Concomitant]
  6. LUCEN (ESOMEPRAZOLE) [Concomitant]
  7. KANRENOL (POTASSIUM CANRENOATE) [Concomitant]
  8. SINGULAIR (MONTELUKAST) [Concomitant]

REACTIONS (2)
  - MYOCARDIAL INFARCTION [None]
  - RASH [None]
